FAERS Safety Report 6904874-1 (Version None)
Quarter: 2010Q3

REPORT INFORMATION
  Report Type: 
  Country: None (occurrence: None)
  Receive Date: 20100804
  Receipt Date: 20090728
  Transmission Date: 20110219
  Serious: Yes (Other)
  Sender: FDA-Public Use
  Company Number: US-PFIZER INC-2009234287

PATIENT
  Sex: Male
  Weight: 89.796 kg

DRUGS (2)
  1. LYRICA [Suspect]
     Indication: NEUROPATHY PERIPHERAL
     Dates: start: 20090625, end: 20090625
  2. REMERON [Concomitant]
     Dosage: UNK

REACTIONS (3)
  - LIP SWELLING [None]
  - NERVOUSNESS [None]
  - SWOLLEN TONGUE [None]
